FAERS Safety Report 23237757 (Version 1)
Quarter: 2023Q4

REPORT INFORMATION
  Report Type: Spontaneous
  Country: ES (occurrence: ES)
  Receive Date: 20231128
  Receipt Date: 20231128
  Transmission Date: 20240110
  Serious: Yes (Hospitalization, Other)
  Sender: FDA-Public Use
  Company Number: ES-AEMPS-1450893

PATIENT
  Age: 76 Year
  Sex: Female

DRUGS (3)
  1. EPIRUBICIN [Suspect]
     Active Substance: EPIRUBICIN
     Indication: Oesophageal adenocarcinoma
     Dosage: UNK (ULTIMATE CYCLE)
     Route: 065
     Dates: start: 20210318, end: 20210503
  2. OXALIPLATIN [Suspect]
     Active Substance: OXALIPLATIN
     Indication: Oesophageal adenocarcinoma
     Dosage: UNK (ULTIMATE CYCLE)
     Route: 065
     Dates: start: 20210318, end: 20210503
  3. CAPECITABINE [Suspect]
     Active Substance: CAPECITABINE
     Indication: Oesophageal adenocarcinoma
     Dosage: UNK (ULTIMATE CYCLE)
     Route: 065
     Dates: start: 20210318, end: 20210503

REACTIONS (3)
  - Neutropenia [Recovering/Resolving]
  - Mucosal inflammation [Recovering/Resolving]
  - Gastroenteritis [Recovering/Resolving]

NARRATIVE: CASE EVENT DATE: 20210501
